FAERS Safety Report 8443221-3 (Version None)
Quarter: 2012Q2

REPORT INFORMATION
  Report Type: 
  Country: None (occurrence: None)
  Receive Date: 20120617
  Receipt Date: 20120608
  Transmission Date: 20120825
  Serious: Yes (Hospitalization)
  Sender: FDA-Public Use
  Company Number: US-ROXANE LABORATORIES, INC.-2012-RO-01379RO

PATIENT
  Age: 48 Year
  Sex: Male

DRUGS (6)
  1. ADALIMUMAB [Suspect]
     Indication: MIXED CONNECTIVE TISSUE DISEASE
  2. METHOTREXATE [Suspect]
     Indication: RHEUMATOID ARTHRITIS
     Route: 048
  3. PREDNISONE [Suspect]
     Indication: MIXED CONNECTIVE TISSUE DISEASE
  4. METHOTREXATE [Suspect]
     Indication: MIXED CONNECTIVE TISSUE DISEASE
  5. ADALIMUMAB [Suspect]
     Indication: RHEUMATOID ARTHRITIS
     Route: 058
  6. PREDNISONE [Suspect]
     Indication: RHEUMATOID ARTHRITIS
     Dosage: 30 MG

REACTIONS (1)
  - PULMONARY TRICHOSPORONOSIS [None]
